FAERS Safety Report 17790528 (Version 1)
Quarter: 2020Q2

REPORT INFORMATION
  Report Type: Spontaneous
  Country: GB (occurrence: GB)
  Receive Date: 20200515
  Receipt Date: 20200515
  Transmission Date: 20200714
  Serious: Yes (Hospitalization, Other)
  Sender: FDA-Public Use
  Company Number: PHHY2018GB082329

PATIENT
  Age: 28 Year
  Sex: Female
  Weight: 74 kg

DRUGS (10)
  1. CLARITHROMYCIN. [Suspect]
     Active Substance: CLARITHROMYCIN
     Dosage: 500 MG
     Route: 065
     Dates: start: 20200108
  2. FEXOFENADINE HYDROCHLORIDE. [Concomitant]
     Active Substance: FEXOFENADINE HYDROCHLORIDE
     Indication: PRODUCT USED FOR UNKNOWN INDICATION
     Route: 065
  3. METRONIDAZOLE. [Concomitant]
     Active Substance: METRONIDAZOLE
     Indication: PRODUCT USED FOR UNKNOWN INDICATION
     Route: 065
  4. SALBUTAMOL [Concomitant]
     Active Substance: ALBUTEROL
     Indication: PRODUCT USED FOR UNKNOWN INDICATION
     Dosage: 15 MINUTES BEFORE EXERCISE
     Route: 055
     Dates: start: 20191102
  5. AMOXICILLIN. [Concomitant]
     Active Substance: AMOXICILLIN
     Indication: PRODUCT USED FOR UNKNOWN INDICATION
     Dosage: FOR 7 DAYS
     Route: 065
     Dates: start: 20200108
  6. CLARITHROMYCIN. [Suspect]
     Active Substance: CLARITHROMYCIN
     Indication: INFECTED CYST
     Dosage: 500 MG, UNK
     Route: 048
     Dates: start: 20180719, end: 20180721
  7. CLARITHROMYCIN. [Concomitant]
     Active Substance: CLARITHROMYCIN
     Indication: PRODUCT USED FOR UNKNOWN INDICATION
     Route: 065
     Dates: start: 20191224, end: 20191231
  8. OMEPRAZOLE. [Concomitant]
     Active Substance: OMEPRAZOLE
     Indication: PRODUCT USED FOR UNKNOWN INDICATION
     Dosage: FOR 3 DAYS
     Route: 065
     Dates: start: 20200108
  9. FEMODENE [Concomitant]
     Active Substance: ETHINYL ESTRADIOL\GESTODENE
     Indication: PRODUCT USED FOR UNKNOWN INDICATION
     Route: 065
  10. METRONIDAZOLE. [Concomitant]
     Active Substance: METRONIDAZOLE
     Dosage: 2 DF
     Route: 065
     Dates: start: 20200108, end: 20200109

REACTIONS (4)
  - Tachycardia [Recovered/Resolved]
  - Chest pain [Recovered/Resolved]
  - Swelling [Unknown]
  - Chest pain [Recovered/Resolved]

NARRATIVE: CASE EVENT DATE: 20180719
